FAERS Safety Report 9629708 (Version 3)
Quarter: 2013Q4

REPORT INFORMATION
  Report Type: Report from Study
  Country: JP (occurrence: JP)
  Receive Date: 20131017
  Receipt Date: 20131230
  Transmission Date: 20140711
  Serious: No
  Sender: FDA-Public Use
  Company Number: JP-JNJFOC-20131006633

PATIENT
  Age: 64 Year
  Sex: Female

DRUGS (10)
  1. SIMPONI [Suspect]
     Indication: RHEUMATOID ARTHRITIS
     Route: 058
     Dates: start: 20130221, end: 20130221
  2. SIMPONI [Suspect]
     Indication: RHEUMATOID ARTHRITIS
     Route: 058
     Dates: start: 20130515, end: 20130515
  3. SIMPONI [Suspect]
     Indication: RHEUMATOID ARTHRITIS
     Route: 058
     Dates: start: 20130606, end: 20130606
  4. METHOTREXATE [Suspect]
     Indication: RHEUMATOID ARTHRITIS
     Route: 065
     Dates: start: 20130221, end: 20130627
  5. METHOTREXATE [Suspect]
     Indication: RHEUMATOID ARTHRITIS
     Route: 065
     Dates: start: 20130207, end: 20130220
  6. CELECOX [Concomitant]
     Indication: RHEUMATOID ARTHRITIS
     Route: 048
     Dates: end: 20130513
  7. DEPAS [Concomitant]
     Indication: INSOMNIA
     Route: 048
  8. FOLIAMIN [Concomitant]
     Indication: PROPHYLAXIS
     Route: 065
  9. MUCOSTA [Concomitant]
     Indication: PROPHYLAXIS
     Route: 065
  10. ALESION [Concomitant]
     Indication: RHINITIS ALLERGIC
     Route: 048

REACTIONS (1)
  - Cell marker increased [Recovered/Resolved]
